FAERS Safety Report 4278309-4 (Version None)
Quarter: 2004Q1

REPORT INFORMATION
  Report Type: 
  Country: None (occurrence: None)
  Receive Date: 20040121
  Receipt Date: 20040106
  Transmission Date: 20041129
  Serious: Yes (Other)
  Sender: FDA-Public Use
  Company Number: USA031254444

PATIENT
  Age: 70 Year
  Sex: Female
  Weight: 76 kg

DRUGS (9)
  1. EVISTA [Suspect]
     Indication: OSTEOPENIA
     Dosage: 60 MG/DAY
     Dates: start: 20030501, end: 20031125
  2. LEVOXYL [Concomitant]
  3. PREVACID [Concomitant]
  4. GARLIC [Concomitant]
  5. GINSENG [Concomitant]
  6. VITAMIN B COMPLEX CAP [Concomitant]
  7. MULTI-VITAMIN [Concomitant]
  8. ST JOHN'S WORT [Concomitant]
  9. CALCIUM [Concomitant]

REACTIONS (1)
  - BREAST CANCER STAGE III [None]
